FAERS Safety Report 9559551 (Version 1)
Quarter: 2013Q3

REPORT INFORMATION
  Report Type: Spontaneous
  Country: US (occurrence: None)
  Receive Date: 20130925
  Receipt Date: 20130925
  Transmission Date: 20140515
  Serious: Yes (Other)
  Sender: FDA-Public Use
  Company Number: SYM-2013-10821

PATIENT
  Age: 51 Year
  Sex: Male

DRUGS (1)
  1. XENAZINE [Suspect]
     Route: 048
     Dates: start: 20130716, end: 20130909

REACTIONS (5)
  - Loss of consciousness [None]
  - Convulsion [None]
  - Lower limb fracture [None]
  - Hypotension [None]
  - Treatment noncompliance [None]
